FAERS Safety Report 7127618-X (Version None)
Quarter: 2010Q4

REPORT INFORMATION
  Report Type: 
  Country: None (occurrence: None)
  Receive Date: 20101130
  Receipt Date: 20101124
  Transmission Date: 20110411
  Serious: No
  Sender: FDA-Public Use
  Company Number: FR-BIOGENIDEC-2010BI032659

PATIENT
  Age: 24 Year
  Sex: Female

DRUGS (2)
  1. AVONEX [Suspect]
     Indication: MULTIPLE SCLEROSIS
     Route: 030
     Dates: start: 20100526, end: 20100901
  2. RIVOTRIL [Concomitant]
     Indication: INSOMNIA

REACTIONS (1)
  - INJECTION SITE PAIN [None]
